FAERS Safety Report 9197804 (Version 1)
Quarter: 2013Q1

REPORT INFORMATION
  Report Type: Spontaneous
  Country: JP (occurrence: JP)
  Receive Date: 20130328
  Receipt Date: 20130328
  Transmission Date: 20140127
  Serious: Yes (Other)
  Sender: FDA-Public Use
  Company Number: JP-PFIZER INC-2013094865

PATIENT
  Sex: Male

DRUGS (2)
  1. XALATAN [Suspect]
     Dosage: UNK
     Route: 047
  2. DIAMOX [Concomitant]

REACTIONS (4)
  - Intraocular pressure increased [Unknown]
  - Visual acuity reduced [Unknown]
  - Visual impairment [Unknown]
  - Drug ineffective [Unknown]
